FAERS Safety Report 7315352-2 (Version None)
Quarter: 2011Q1

REPORT INFORMATION
  Report Type: 
  Country: None (occurrence: None)
  Receive Date: 20110218
  Receipt Date: 20110218
  Transmission Date: 20110831
  Serious: Yes (Life-Threatening, Other)
  Sender: FDA-Public Use
  Company Number: None

PATIENT
  Age: 40 Year
  Sex: Female
  Weight: 97.5234 kg

DRUGS (1)
  1. NUVARING [Suspect]
     Indication: CONTRACEPTION
     Dosage: MONTHLY VAG
     Route: 067
     Dates: start: 20080111, end: 20090709

REACTIONS (7)
  - PLEURISY [None]
  - HYPOXIA [None]
  - BRONCHITIS CHRONIC [None]
  - CARDIAC ARREST [None]
  - ANOXIA [None]
  - OEDEMA PERIPHERAL [None]
  - DYSPNOEA [None]
